FAERS Safety Report 10177509 (Version 1)
Quarter: 2014Q2

REPORT INFORMATION
  Report Type: Spontaneous
  Country: AU (occurrence: AU)
  Receive Date: 20140516
  Receipt Date: 20140516
  Transmission Date: 20141212
  Serious: Yes (Hospitalization)
  Sender: FDA-Public Use
  Company Number: AU-MYLANLABS-2014S1010595

PATIENT
  Age: 34 Year
  Sex: Female

DRUGS (5)
  1. METHYLDOPA [Suspect]
     Indication: PRE-ECLAMPSIA
     Dosage: THEN DOSE REDUCED TO 250 MG 3 TIMES A DAY
     Route: 065
  2. METHYLDOPA [Suspect]
     Indication: OFF LABEL USE
     Dosage: THEN DOSE REDUCED TO 250 MG 3 TIMES A DAY
     Route: 065
  3. METHYLDOPA [Suspect]
     Indication: PRE-ECLAMPSIA
     Route: 065
  4. METHYLDOPA [Suspect]
     Indication: OFF LABEL USE
     Route: 065
  5. HYDRALAZINE [Concomitant]
     Indication: PRE-ECLAMPSIA
     Route: 065

REACTIONS (2)
  - Hepatitis [Recovering/Resolving]
  - Hepatic fibrosis [Not Recovered/Not Resolved]
